FAERS Safety Report 4652457-9 (Version None)
Quarter: 2005Q2

REPORT INFORMATION
  Report Type: 
  Country: None (occurrence: None)
  Receive Date: 20050502
  Receipt Date: 20050425
  Transmission Date: 20051028
  Serious: Yes (Other)
  Sender: FDA-Public Use
  Company Number: 2005-04-1415

PATIENT
  Age: 54 Year
  Sex: Male
  Weight: 74 kg

DRUGS (2)
  1. PEGASYS [Suspect]
     Indication: HEPATITIS C
     Dosage: QW
     Dates: start: 20050223, end: 20050401
  2. REBETOL [Suspect]
     Indication: HEPATITIS C
     Dosage: 1000 MG QD ORAL
     Route: 048
     Dates: start: 20050223, end: 20050401

REACTIONS (5)
  - BRONCHITIS [None]
  - COUGH [None]
  - PAIN [None]
  - PYREXIA [None]
  - TUBERCULIN TEST POSITIVE [None]
